FAERS Safety Report 22382112 (Version 1)
Quarter: 2023Q2

REPORT INFORMATION
  Report Type: Spontaneous
  Country: US (occurrence: US)
  Receive Date: 20230530
  Receipt Date: 20230530
  Transmission Date: 20230721
  Serious: Yes (Other)
  Sender: FDA-Public Use
  Company Number: US-AUROBINDO-AUR-APL-2023-039137

PATIENT
  Age: 60 Year
  Sex: Male

DRUGS (1)
  1. THIAMINE [Suspect]
     Active Substance: THIAMINE
     Indication: Alcohol withdrawal syndrome
     Dosage: UNK
     Route: 065

REACTIONS (4)
  - Alcoholic encephalopathy [Recovered/Resolved]
  - Disease progression [Recovered/Resolved]
  - Mental disorder [Recovered/Resolved]
  - Nicotinic acid deficiency [Recovered/Resolved]
